FAERS Safety Report 5195682-3 (Version None)
Quarter: 2006Q4

REPORT INFORMATION
  Report Type: 
  Country: None (occurrence: None)
  Receive Date: 20061227
  Receipt Date: 20061219
  Transmission Date: 20070319
  Serious: Yes (Death, Life-Threatening, Hospitalization, Other)
  Sender: FDA-Public Use
  Company Number: CLOF-10395

PATIENT
  Age: 26 Year
  Sex: Female

DRUGS (33)
  1. CLOFARABINE [Suspect]
     Indication: ACUTE LYMPHOCYTIC LEUKAEMIA
     Dosage: 60 MG QD X 3 IV
     Route: 042
     Dates: start: 20061109, end: 20061111
  2. CYCLOPHOSPHAMIDE [Suspect]
     Indication: ACUTE LYMPHOCYTIC LEUKAEMIA
     Dosage: 453 MG BID IV
     Route: 042
     Dates: start: 20061108, end: 20061111
  3. BACTRIM DS [Concomitant]
  4. COMPAZINE [Concomitant]
  5. CYTARABINE [Concomitant]
  6. KEPPRA [Concomitant]
  7. LO/OVRAL [Concomitant]
  8. MORPHINE SULFATE [Concomitant]
  9. NEXIUM [Concomitant]
  10. VALTREX [Concomitant]
  11. AMIKACIN [Concomitant]
  12. AMPHOTERICIN B [Concomitant]
  13. ANIDULAFUNGIN [Concomitant]
  14. AZTREONAM [Concomitant]
  15. CIPROFLOXACIN [Concomitant]
  16. DEXAMETHASONE [Concomitant]
  17. ESOMEPRAZOLE MAGNESIUM [Concomitant]
  18. HYDROCORTISONE [Concomitant]
  19. LEVALBUTEROL HCL [Concomitant]
  20. LEVETIRACETAM [Concomitant]
  21. VITAMIN K [Concomitant]
  22. ZOSYN [Concomitant]
  23. SEVELAMER [Concomitant]
  24. URSODIOL [Concomitant]
  25. VALACYCLOVIR [Concomitant]
  26. THIAMINE [Concomitant]
  27. ANIDULAFUNGIN [Concomitant]
  28. TIGECYCLINE [Concomitant]
  29. COLISTIMETHATE [Concomitant]
  30. ACYCLOVIR [Concomitant]
  31. LASIX [Concomitant]
  32. PHENYTOIN SODIUM CAP [Concomitant]
  33. FILGRASTIM [Concomitant]

REACTIONS (13)
  - ALANINE AMINOTRANSFERASE INCREASED [None]
  - CELLULITIS GANGRENOUS [None]
  - DIALYSIS [None]
  - ELECTROCARDIOGRAM T WAVE AMPLITUDE DECREASED [None]
  - FEBRILE NEUTROPENIA [None]
  - HYPERBILIRUBINAEMIA [None]
  - HYPOTENSION [None]
  - MYOCARDIAL ISCHAEMIA [None]
  - PSEUDOMONAS INFECTION [None]
  - RENAL FAILURE [None]
  - TROPONIN I INCREASED [None]
  - VAGINAL CELLULITIS [None]
  - WHITE BLOOD CELL COUNT DECREASED [None]
